FAERS Safety Report 8408169-9 (Version None)
Quarter: 2012Q2

REPORT INFORMATION
  Report Type: 
  Country: None (occurrence: None)
  Receive Date: 20120604
  Receipt Date: 20120529
  Transmission Date: 20120825
  Serious: Yes (Other)
  Sender: FDA-Public Use
  Company Number: IE-PFIZER INC-2012053733

PATIENT
  Age: 66 Year
  Sex: Female

DRUGS (3)
  1. MEROPENEM [Concomitant]
     Dosage: 1 G, 3X/DAY
     Route: 042
     Dates: start: 20120224
  2. ECALTA [Suspect]
     Indication: SEPSIS
     Dosage: 100 MG, 1X/DAY
     Route: 042
     Dates: start: 20120224
  3. VANCOMYCIN [Concomitant]
     Dosage: 1 G, 2X/DAY
     Route: 042
     Dates: start: 20120224

REACTIONS (3)
  - ALANINE AMINOTRANSFERASE INCREASED [None]
  - LIVER FUNCTION TEST ABNORMAL [None]
  - ASPARTATE AMINOTRANSFERASE INCREASED [None]
